FAERS Safety Report 8926462 (Version 3)
Quarter: 2013Q1

REPORT INFORMATION
  Report Type: Spontaneous
  Country: US (occurrence: US)
  Receive Date: 20121127
  Receipt Date: 20130305
  Transmission Date: 20140127
  Serious: Yes (Other)
  Sender: FDA-Public Use
  Company Number: US-PFIZER INC-2012293163

PATIENT
  Age: 87 Year
  Sex: Male
  Weight: 104.31 kg

DRUGS (4)
  1. TOVIAZ [Suspect]
     Indication: HYPERTONIC BLADDER
     Dosage: 4 MG, 1X/DAY
     Route: 048
     Dates: start: 2012, end: 2012
  2. TOVIAZ [Suspect]
     Dosage: 8 MG, 1X/DAY (QHS)
     Route: 048
     Dates: start: 2012, end: 201211
  3. TOVIAZ [Suspect]
     Dosage: 8 MG (TWO TABLETS OF 4 MG), 1X/DAY HS
     Route: 048
     Dates: start: 201211
  4. MIDODRINE [Concomitant]
     Indication: HYPOTENSION
     Dosage: UNK

REACTIONS (4)
  - Orthostatic hypotension [Recovered/Resolved]
  - Feeling abnormal [Recovered/Resolved]
  - Dry mouth [Unknown]
  - Dizziness [Recovered/Resolved]
